FAERS Safety Report 4590898-9 (Version None)
Quarter: 2005Q1

REPORT INFORMATION
  Report Type: 
  Country: None (occurrence: None)
  Receive Date: 20050225
  Receipt Date: 20041221
  Transmission Date: 20050727
  Serious: No
  Sender: FDA-Public Use
  Company Number: US-GLAXOSMITHKLINE-A0538232A

PATIENT
  Sex: Female

DRUGS (9)
  1. EPZICOM [Suspect]
     Indication: HIV INFECTION
     Dosage: 900MG PER DAY
     Route: 048
     Dates: start: 20041219
  2. SEDUXEN [Concomitant]
  3. NORVIR [Concomitant]
  4. SULFAMETHOXAZOL TMP [Concomitant]
  5. SYNTHROID [Concomitant]
  6. VITAMINS [Concomitant]
  7. REYATAZ [Concomitant]
  8. BENADRYL [Concomitant]
  9. PAXIL [Concomitant]

REACTIONS (2)
  - DIZZINESS [None]
  - PAIN IN EXTREMITY [None]
